FAERS Safety Report 8420620-7 (Version None)
Quarter: 2012Q2

REPORT INFORMATION
  Report Type: 
  Country: None (occurrence: None)
  Receive Date: 20120608
  Receipt Date: 20120531
  Transmission Date: 20120825
  Serious: No
  Sender: FDA-Public Use
  Company Number: US-BIOGENIDEC-2012BI019382

PATIENT
  Age: 30 Year
  Sex: Female

DRUGS (2)
  1. AVONEX [Concomitant]
     Indication: MULTIPLE SCLEROSIS
  2. TYSABRI [Suspect]
     Indication: MULTIPLE SCLEROSIS
     Route: 042
     Dates: start: 20120113

REACTIONS (4)
  - MUSCULAR WEAKNESS [None]
  - TREMOR [None]
  - DIZZINESS [None]
  - MUSCULOSKELETAL DISORDER [None]
